FAERS Safety Report 13689694 (Version 1)
Quarter: 2017Q2

REPORT INFORMATION
  Report Type: Spontaneous
  Country: US (occurrence: US)
  Receive Date: 20170626
  Receipt Date: 20170626
  Transmission Date: 20170830
  Serious: Yes (Other)
  Sender: FDA-Public Use
  Company Number: US-PFIZER INC-2017274768

PATIENT
  Age: 54 Year
  Sex: Male

DRUGS (1)
  1. IRINOTECAN HCL [Suspect]
     Active Substance: IRINOTECAN HYDROCHLORIDE
     Indication: COLON CANCER METASTATIC
     Dosage: UNK

REACTIONS (4)
  - Large intestine perforation [Unknown]
  - Pelvic abscess [Unknown]
  - Pyrexia [Unknown]
  - Abdominal pain [Unknown]
